FAERS Safety Report 17142868 (Version 1)
Quarter: 2019Q4

REPORT INFORMATION
  Report Type: Spontaneous
  Country: US (occurrence: US)
  Receive Date: 20191211
  Receipt Date: 20191211
  Transmission Date: 20200122
  Serious: Yes (Death, Other)
  Sender: FDA-Public Use
  Company Number: NVSC2019US064796

PATIENT
  Age: 57 Year
  Sex: Female

DRUGS (3)
  1. ACETAMINOPHEN (PARACETAMOL) [Suspect]
     Active Substance: ACETAMINOPHEN
     Indication: PRODUCT USED FOR UNKNOWN INDICATION
     Dosage: UNK
     Route: 065
  2. HYDROCODONE [Suspect]
     Active Substance: HYDROCODONE
     Indication: PRODUCT USED FOR UNKNOWN INDICATION
     Dosage: UNK
     Route: 065
  3. DIAZEPAM. [Suspect]
     Active Substance: DIAZEPAM
     Indication: PRODUCT USED FOR UNKNOWN INDICATION
     Dosage: UNK
     Route: 065

REACTIONS (13)
  - Rhabdomyolysis [Unknown]
  - Acute lung injury [Unknown]
  - Respiratory depression [Unknown]
  - Acute kidney injury [Unknown]
  - Nervous system disorder [Unknown]
  - Hypotension [Unknown]
  - Hepatotoxicity [Unknown]
  - Toxicity to various agents [Fatal]
  - Hypoglycaemia [Unknown]
  - Coagulopathy [Unknown]
  - Intestinal ischaemia [Unknown]
  - Blister [Unknown]
  - Metabolic acidosis [Unknown]
